FAERS Safety Report 4290147-5 (Version None)
Quarter: 2004Q1

REPORT INFORMATION
  Report Type: 
  Country: None (occurrence: None)
  Receive Date: 20040209
  Receipt Date: 20040204
  Transmission Date: 20041129
  Serious: Yes (Death, Hospitalization)
  Sender: FDA-Public Use
  Company Number: TPA2004A00147

PATIENT
  Sex: Male

DRUGS (1)
  1. ACTOS [Suspect]
     Dosage: PER ORAL
     Route: 048

REACTIONS (2)
  - CARDIAC FAILURE CONGESTIVE [None]
  - COMA [None]
